FAERS Safety Report 24836745 (Version 3)
Quarter: 2025Q1

REPORT INFORMATION
  Report Type: Report from Study
  Country: IN (occurrence: IN)
  Receive Date: 20250113
  Receipt Date: 20250217
  Transmission Date: 20250409
  Serious: Yes (Other)
  Sender: NOVARTIS
  Company Number: IN-002147023-NVSC2022IN288558

PATIENT
  Age: 62 Year
  Sex: Female

DRUGS (6)
  1. RIBOCICLIB [Suspect]
     Active Substance: RIBOCICLIB
     Indication: Breast cancer metastatic
     Dosage: 200 MG, QD
     Route: 048
     Dates: start: 20210915
  2. RIBOCICLIB [Suspect]
     Active Substance: RIBOCICLIB
     Indication: Hormone receptor positive HER2 negative breast cancer
     Dosage: 600 MG, QD, (FOR 21 DAYS AND 7 DAYS OFF)
     Route: 048
     Dates: start: 20221129
  3. RIBOCICLIB [Suspect]
     Active Substance: RIBOCICLIB
     Route: 065
     Dates: start: 20241005
  4. RIBOCICLIB [Suspect]
     Active Substance: RIBOCICLIB
     Dosage: 200 MG BID 1 TAB TWICE DAILY D1-D2 - 7DAYS OFF
     Route: 048
  5. RIBOCICLIB [Suspect]
     Active Substance: RIBOCICLIB
     Dosage: 600 MG, QD
     Route: 048
  6. RIBOCICLIB [Suspect]
     Active Substance: RIBOCICLIB
     Dosage: 200 MG, BID
     Route: 048

REACTIONS (4)
  - Blindness [Unknown]
  - Nasopharyngitis [Recovering/Resolving]
  - Off label use [Unknown]
  - Product availability issue [Unknown]

NARRATIVE: CASE EVENT DATE: 20221101
